FAERS Safety Report 15674659 (Version 2)
Quarter: 2018Q4

REPORT INFORMATION
  Report Type: Spontaneous
  Country: US (occurrence: US)
  Receive Date: 20181130
  Receipt Date: 20181210
  Transmission Date: 20190205
  Serious: Yes (Other)
  Sender: FDA-Public Use
  Company Number: US-AUROBINDO-AUR-APL-2018-056961

PATIENT
  Sex: Female

DRUGS (2)
  1. DULOXETINE DELAYED-RELEASE CAPSULES USP 30 MG [Suspect]
     Active Substance: DULOXETINE
     Dosage: 60 MILLIGRAM,ONCE DAILY AT NIGHT
     Route: 048
  2. DULOXETINE DELAYED-RELEASE CAPSULES USP 30 MG [Suspect]
     Active Substance: DULOXETINE
     Indication: PELVIC PAIN
     Dosage: 30 MILLIGRAM, ONCE DAILY AT NIGHT
     Route: 048
     Dates: start: 201807

REACTIONS (4)
  - Coeliac disease [Not Recovered/Not Resolved]
  - Flatulence [Not Recovered/Not Resolved]
  - Abdominal pain [Not Recovered/Not Resolved]
  - Diarrhoea [Not Recovered/Not Resolved]
